APPROVED DRUG PRODUCT: WARFARIN SODIUM
Active Ingredient: WARFARIN SODIUM
Strength: 2MG
Dosage Form/Route: TABLET;ORAL
Application: A088719 | Product #001
Applicant: USL PHARMA INC
Approved: Jun 27, 1985 | RLD: No | RS: No | Type: DISCN